FAERS Safety Report 6476069-X (Version None)
Quarter: 2009Q4

REPORT INFORMATION
  Report Type: 
  Country: None (occurrence: None)
  Receive Date: 20091204
  Receipt Date: 20091124
  Transmission Date: 20100525
  Serious: Yes (Other)
  Sender: FDA-Public Use
  Company Number: US-AMGEN-US376529

PATIENT
  Age: 67 Year
  Sex: Male
  Weight: 61 kg

DRUGS (3)
  1. PANITUMUMAB [Suspect]
     Indication: PANCREATIC CARCINOMA
     Route: 042
     Dates: start: 20090824
  2. GEMCITABINE [Suspect]
     Route: 042
     Dates: start: 20090824
  3. ERLOTINIB HYDROCHLORIDE [Suspect]
     Route: 048
     Dates: start: 20090824

REACTIONS (1)
  - WEIGHT DECREASED [None]
